FAERS Safety Report 11776927 (Version 2)
Quarter: 2015Q4

REPORT INFORMATION
  Report Type: Spontaneous
  Country: GB (occurrence: GB)
  Receive Date: 20151125
  Receipt Date: 20151204
  Transmission Date: 20160304
  Serious: Yes (Other)
  Sender: FDA-Public Use
  Company Number: GB-ACTAVIS-2015-25588

PATIENT
  Age: 44 Year
  Sex: Female

DRUGS (10)
  1. OLANZAPINE (UNKNOWN) [Suspect]
     Active Substance: OLANZAPINE
     Indication: PRODUCT USED FOR UNKNOWN INDICATION
     Dosage: UP TO 20 MG, PRN
     Route: 048
     Dates: start: 201503, end: 201504
  2. CLOPIXOL                           /00876702/ [Suspect]
     Active Substance: ZUCLOPENTHIXOL ACETATE
     Dosage: 100 MG, UNK
     Route: 030
     Dates: start: 20150402, end: 20150402
  3. CLONAZEPAM (UNKNOWN) [Suspect]
     Active Substance: CLONAZEPAM
     Indication: PRODUCT USED FOR UNKNOWN INDICATION
     Dosage: 3 MG, DAILY
     Route: 048
     Dates: start: 20150329, end: 20150413
  4. CLOPIXOL                           /00876702/ [Suspect]
     Active Substance: ZUCLOPENTHIXOL ACETATE
     Dosage: 50 MG, UNK
     Route: 030
     Dates: start: 20150331, end: 20150331
  5. LORAZEPAM. [Suspect]
     Active Substance: LORAZEPAM
     Indication: PRODUCT USED FOR UNKNOWN INDICATION
     Dosage: 4 MG, UNK
     Route: 030
     Dates: start: 20150402, end: 20150402
  6. CLOPIXOL                           /00876702/ [Suspect]
     Active Substance: ZUCLOPENTHIXOL ACETATE
     Dosage: 150 MG, UNK
     Route: 030
     Dates: start: 20150412, end: 20150412
  7. ARIPIPRAZOLE (UNKNOWN) [Suspect]
     Active Substance: ARIPIPRAZOLE
     Indication: PRODUCT USED FOR UNKNOWN INDICATION
     Dosage: 15 MG, DAILY
     Route: 048
     Dates: start: 20150130, end: 20150413
  8. CLOPIXOL                           /00876702/ [Suspect]
     Active Substance: ZUCLOPENTHIXOL ACETATE
     Indication: MANIA
     Dosage: 100 MG, UNK
     Route: 030
     Dates: start: 20150413, end: 20150413
  9. LORAZEPAM. [Suspect]
     Active Substance: LORAZEPAM
     Dosage: 4 MG, UNK
     Route: 030
     Dates: start: 20150401, end: 20150401
  10. CLOPIXOL                           /00876702/ [Suspect]
     Active Substance: ZUCLOPENTHIXOL ACETATE
     Dosage: 100 MG, UNK
     Route: 030
     Dates: start: 20150401, end: 20150401

REACTIONS (2)
  - Medication error [Recovered/Resolved]
  - Neutropenia [Recovered/Resolved]

NARRATIVE: CASE EVENT DATE: 20150414
